FAERS Safety Report 13624368 (Version 1)
Quarter: 2017Q2

REPORT INFORMATION
  Report Type: Spontaneous
  Country: US (occurrence: US)
  Receive Date: 20170608
  Receipt Date: 20170608
  Transmission Date: 20170830
  Serious: Yes (Other)
  Sender: FDA-Public Use
  Company Number: US-APOTEX-2017AP012771

PATIENT
  Age: 75 Year
  Sex: Female

DRUGS (1)
  1. FLUOXETINE ORAL SOLUTION USP [Suspect]
     Active Substance: FLUOXETINE HYDROCHLORIDE
     Indication: DEPRESSION
     Route: 065

REACTIONS (6)
  - Parkinsonism [Unknown]
  - Fall [Unknown]
  - Tremor [Recovered/Resolved]
  - Cogwheel rigidity [Recovered/Resolved]
  - Bradykinesia [Recovered/Resolved]
  - Hip fracture [Unknown]
